FAERS Safety Report 21621706 (Version 1)
Quarter: 2022Q4

REPORT INFORMATION
  Report Type: Spontaneous
  Country: JP (occurrence: JP)
  Receive Date: 20221121
  Receipt Date: 20221121
  Transmission Date: 20230113
  Serious: Yes (Death, Hospitalization, Other)
  Sender: FDA-Public Use
  Company Number: JP-GILEAD-2022-0605383

PATIENT
  Age: 69 Year
  Sex: Male

DRUGS (2)
  1. VEKLURY [Suspect]
     Active Substance: REMDESIVIR
     Indication: COVID-19
     Dosage: UNK
     Route: 065
  2. ARGATROBAN [Concomitant]
     Active Substance: ARGATROBAN

REACTIONS (11)
  - Respiratory failure [Fatal]
  - Death [Fatal]
  - Device related infection [Unknown]
  - Enterococcal infection [Unknown]
  - Staphylococcal infection [Unknown]
  - Bacteraemia [Unknown]
  - Cholelithiasis [Unknown]
  - Bronchiectasis [Unknown]
  - Computerised tomogram thorax abnormal [Unknown]
  - Altered state of consciousness [Unknown]
  - Pulmonary alveolar haemorrhage [Unknown]
